FAERS Safety Report 9297871 (Version 1)
Quarter: 2013Q2

REPORT INFORMATION
  Report Type: Report from Study
  Country: FR (occurrence: FR)
  Receive Date: 20130520
  Receipt Date: 20130520
  Transmission Date: 20140414
  Serious: Yes (Hospitalization, Disabling, Other)
  Sender: FDA-Public Use
  Company Number: FR-BAYER-2013-059892

PATIENT
  Age: 71 Year
  Sex: Male

DRUGS (6)
  1. REGORAFENIB [Suspect]
     Indication: COLORECTAL CANCER METASTATIC
     Dosage: DAILY DOSE 160 MG
     Dates: start: 20130408, end: 20130420
  2. SKENAN [Concomitant]
     Indication: PAIN
     Dosage: 2 DF, QD
     Dates: start: 20130418
  3. ACTISKENAN [Concomitant]
     Indication: PAIN
     Dosage: 2 DF, QD
     Dates: start: 20130418
  4. XATRAL [Concomitant]
  5. VESICARE [Concomitant]
     Indication: DYSURIA
     Dosage: UNK
     Dates: start: 201301
  6. ORACILLINE [Concomitant]
     Indication: SPLENECTOMY
     Dosage: UNK
     Dates: start: 2011

REACTIONS (1)
  - Confusional state [Not Recovered/Not Resolved]
